FAERS Safety Report 4310472-9 (Version None)
Quarter: 2004Q1

REPORT INFORMATION
  Report Type: 
  Country: None (occurrence: None)
  Receive Date: 20040303
  Receipt Date: 20030417
  Transmission Date: 20041129
  Serious: Yes (Hospitalization)
  Sender: FDA-Public Use
  Company Number: SE-ROCHE-336422

PATIENT
  Age: 26 Year
  Sex: Male
  Weight: 118.5 kg

DRUGS (14)
  1. MYCOPHENOLATE MOFETIL [Suspect]
     Route: 048
     Dates: start: 20030326
  2. DACLIZUMAB [Suspect]
     Route: 042
     Dates: start: 20030326, end: 20030326
  3. DACLIZUMAB [Suspect]
     Route: 042
     Dates: start: 20030408, end: 20030422
  4. SIROLIMUS [Suspect]
     Route: 048
     Dates: start: 20030330, end: 20030417
  5. TACROLIMUS [Suspect]
     Route: 048
     Dates: start: 20030418
  6. PREDNISOLONE [Suspect]
     Route: 048
     Dates: start: 20030126
  7. GANCICLOVIR [Concomitant]
     Route: 048
     Dates: start: 20030331, end: 20040203
  8. FELODIPIN [Concomitant]
     Route: 048
     Dates: start: 20030329
  9. PANTOPRAZOL [Concomitant]
     Route: 048
     Dates: start: 20030327
  10. FUROSEMIDE [Concomitant]
     Route: 048
     Dates: start: 20030327
  11. METOPROLOL [Concomitant]
     Route: 048
     Dates: start: 20030327
  12. DOXAZOSIN MESYLATE [Concomitant]
     Route: 048
     Dates: start: 20030408
  13. VENLAFAXIN [Concomitant]
     Route: 048
     Dates: start: 19970615
  14. RISPERIDONE [Concomitant]
     Route: 048
     Dates: start: 19970615

REACTIONS (2)
  - WOUND DEHISCENCE [None]
  - WOUND INFECTION STAPHYLOCOCCAL [None]
